FAERS Safety Report 17190481 (Version 1)
Quarter: 2019Q4

REPORT INFORMATION
  Report Type: Spontaneous
  Country: US (occurrence: US)
  Receive Date: 20191219
  Receipt Date: 20191219
  Transmission Date: 20200122
  Serious: Yes (Death, Other)
  Sender: FDA-Public Use
  Company Number: None

PATIENT
  Sex: Female

DRUGS (1)
  1. J AND J BABY POWDER (ZINC OXIDE) [Suspect]
     Active Substance: ZINC OXIDE

REACTIONS (5)
  - Hypertension [None]
  - Salpingo-oophorectomy bilateral [None]
  - Chronic kidney disease [None]
  - Hysterectomy [None]
  - Ovarian cancer metastatic [None]
